FAERS Safety Report 7919081-3 (Version None)
Quarter: 2011Q4

REPORT INFORMATION
  Report Type: 
  Country: None (occurrence: None)
  Receive Date: 20111116
  Receipt Date: 20111107
  Transmission Date: 20120403
  Serious: Yes (Disabling)
  Sender: FDA-Public Use
  Company Number: CA-ASTRAZENECA-2011SE67323

PATIENT
  Age: 71 Year
  Sex: Female

DRUGS (3)
  1. AVALIDE [Suspect]
     Dosage: STRENGTH: 150/2.5 MG 1 DF DAILY
     Route: 048
  2. CRESTOR [Suspect]
     Route: 048
  3. AVAPRO [Suspect]
     Route: 048

REACTIONS (7)
  - HAEMORRHAGE [None]
  - IMMOBILE [None]
  - DRY MOUTH [None]
  - ADVERSE REACTION [None]
  - MYALGIA [None]
  - INSOMNIA [None]
  - ASTHENIA [None]
